FAERS Safety Report 6382760-6 (Version None)
Quarter: 2009Q3

REPORT INFORMATION
  Report Type: 
  Country: None (occurrence: None)
  Receive Date: 20090930
  Receipt Date: 20090921
  Transmission Date: 20100115
  Serious: Yes (Other)
  Sender: FDA-Public Use
  Company Number: US-ELI_LILLY_AND_COMPANY-US200906003299

PATIENT
  Age: 48 Year
  Sex: Female
  Weight: 65.76 kg

DRUGS (6)
  1. ZYPREXA [Suspect]
     Dosage: 2.5 MG, UNK
     Dates: start: 20090101
  2. LITHIUM [Concomitant]
     Dosage: 600 MG, UNK
  3. LAMICTAL [Concomitant]
     Dosage: UNK, UNK
  4. PROPRANOLOL [Concomitant]
  5. FLUOXETINE [Concomitant]
  6. XANAX [Concomitant]
     Indication: TREMOR
     Dosage: UNK, AS NEEDED

REACTIONS (1)
  - TRANSIENT ISCHAEMIC ATTACK [None]
